FAERS Safety Report 8543942-8 (Version None)
Quarter: 2012Q3

REPORT INFORMATION
  Report Type: 
  Country: None (occurrence: None)
  Receive Date: 20120727
  Receipt Date: 20120712
  Transmission Date: 20120928
  Serious: Yes (Other)
  Sender: FDA-Public Use
  Company Number: GB-VERTEX PHARMACEUTICALS INC.-000000000000001110

PATIENT
  Sex: Female

DRUGS (3)
  1. RIBAVIRIN [Concomitant]
     Indication: HEPATITIS C
     Dosage: DOSAGE FORM: UNSPECIFIED, 1000-1200 MG DAILY
     Route: 048
     Dates: start: 20120625
  2. INCIVO [Suspect]
     Indication: HEPATITIS C
     Dosage: DOSAGE FORM: TABLET
     Route: 048
     Dates: start: 20120625
  3. INTERFERON [Concomitant]
     Indication: HEPATITIS C
     Dosage: DOSAGE FORM: UNSPECIFIED, ONCE WEEKLY
     Route: 058
     Dates: start: 20120625

REACTIONS (6)
  - DYSPNOEA [None]
  - RECTAL HAEMORRHAGE [None]
  - PROCTALGIA [None]
  - NAUSEA [None]
  - INSOMNIA [None]
  - HEADACHE [None]
